FAERS Safety Report 7249949-5 (Version None)
Quarter: 2011Q1

REPORT INFORMATION
  Report Type: 
  Country: None (occurrence: None)
  Receive Date: 20110128
  Receipt Date: 20100914
  Transmission Date: 20110831
  Serious: No
  Sender: FDA-Public Use
  Company Number: A0886902A

PATIENT
  Sex: Male

DRUGS (1)
  1. WELLBUTRIN XL [Suspect]
     Dosage: 300MG PER DAY
     Route: 048

REACTIONS (3)
  - PRODUCT QUALITY ISSUE [None]
  - WEIGHT INCREASED [None]
  - PRODUCT COUNTERFEIT [None]
